FAERS Safety Report 18807708 (Version 2)
Quarter: 2021Q2

REPORT INFORMATION
  Report Type: Report from Study
  Country: CA (occurrence: CA)
  Receive Date: 20210129
  Receipt Date: 20210523
  Transmission Date: 20210717
  Serious: Yes (Other)
  Sender: FDA-Public Use
  Company Number: CA-HLS-202106926

PATIENT
  Age: 62 Year
  Sex: Male

DRUGS (1)
  1. CLOZARIL [Suspect]
     Active Substance: CLOZAPINE
     Indication: PSYCHOTIC DISORDER
     Route: 048
     Dates: start: 20161103

REACTIONS (4)
  - Dehydration [Unknown]
  - Off label use [Unknown]
  - Brain neoplasm [Unknown]
  - Paralysis [Unknown]

NARRATIVE: CASE EVENT DATE: 20210101
